FAERS Safety Report 11220902 (Version 2)
Quarter: 2015Q3

REPORT INFORMATION
  Report Type: Report from Study
  Country: CO (occurrence: CO)
  Receive Date: 20150626
  Receipt Date: 20150714
  Transmission Date: 20151125
  Serious: Yes (Hospitalization, Other)
  Sender: FDA-Public Use
  Company Number: CO-ROCHE-1599776

PATIENT
  Age: 14 Year
  Sex: Male
  Weight: 57.2 kg

DRUGS (1)
  1. XOLAIR [Suspect]
     Active Substance: OMALIZUMAB
     Indication: ASTHMA
     Route: 058
     Dates: end: 20141003

REACTIONS (2)
  - Nasal septum deviation [Unknown]
  - Asthmatic crisis [Unknown]

NARRATIVE: CASE EVENT DATE: 20150611
